FAERS Safety Report 7799851 (Version 2)
Quarter: 2012Q4

REPORT INFORMATION
  Report Type: 
  Country: US (occurrence: US)
  Receive Date: 20110204
  Receipt Date: 20121217
  Transmission Date: 20130627
  Serious: Yes (Hospitalization)
  Sender: FDA-Public Use
  Company Number: US-ACTELION-A-US2011-44313

PATIENT
  Age: 76 Year
  Sex: Female

DRUGS (4)
  1. TRACLEER [Suspect]
     Indication: PULMONARY ARTERIAL HYPERTENSION
     Dosage: UNK
     Route: 048
     Dates: start: 20050131
  2. TADALAFIL [Concomitant]
  3. CALCIUM CHANNEL BLOCKERS [Concomitant]
  4. PLAVIX [Concomitant]

REACTIONS (5)
  - Diverticulitis [Unknown]
  - Weight decreased [Unknown]
  - Cardiac pacemaker battery replacement [Unknown]
  - Nasopharyngitis [Unknown]
  - Weight decreased [Unknown]
